FAERS Safety Report 24524915 (Version 1)
Quarter: 2024Q4

REPORT INFORMATION
  Report Type: Report from Study
  Country: PT (occurrence: PT)
  Receive Date: 20241019
  Receipt Date: 20241019
  Transmission Date: 20250114
  Serious: Yes (Other)
  Sender: ABBVIE
  Company Number: PT-ABBVIE-5946834

PATIENT
  Age: 87 Year
  Sex: Male

DRUGS (6)
  1. CARBIDOPA\LEVODOPA [Suspect]
     Active Substance: CARBIDOPA\LEVODOPA
     Indication: Parkinson^s disease
     Dosage: 240 MG + 12 MG, BA:0.44;HI:0.53;LOW:0.33;LOA:0.70;X:0.15.?LAST ADMIN DATE SEP 2024
     Route: 058
     Dates: start: 20240904
  2. CARBIDOPA\LEVODOPA [Suspect]
     Active Substance: CARBIDOPA\LEVODOPA
     Dosage: 240 MG + 12 MG, BA:0.43;HI:0.5;LOW:0.35;LOA:0.7;X:0.25
     Route: 058
     Dates: start: 20240927
  3. CARBIDOPA\LEVODOPA [Suspect]
     Active Substance: CARBIDOPA\LEVODOPA
     Dosage: 240 MG + 12 MG, BA:0.4;HI:0.42;LOW:0.35;LOA:0.7;X:0.25.?LAST ADMIN DATE 27 SEP 2024
     Route: 058
     Dates: start: 202409
  4. XADAGO [Concomitant]
     Active Substance: SAFINAMIDE MESYLATE
     Indication: Product used for unknown indication
     Dosage: 1 TABLET, IN THE MORNING, BEFORE DUODOPA
  5. CLOZAPINE [Concomitant]
     Active Substance: CLOZAPINE
     Indication: Product used for unknown indication
     Dosage: 0.5 TABLET
  6. combodart (dutasteride + tamsulosin) [Concomitant]
     Indication: Product used for unknown indication
     Dosage: 1 TABLET

REACTIONS (2)
  - Infusion site pain [Recovered/Resolved]
  - Erythema [Recovered/Resolved]

NARRATIVE: CASE EVENT DATE: 20240926
